FAERS Safety Report 4598480-4 (Version None)
Quarter: 2005Q1

REPORT INFORMATION
  Report Type: 
  Country: None (occurrence: None)
  Receive Date: 20050204
  Receipt Date: 20031223
  Transmission Date: 20050727
  Serious: Yes (Other)
  Sender: FDA-Public Use
  Company Number: PHEH2003US11682

PATIENT
  Age: 38 Year
  Sex: Male

DRUGS (4)
  1. CLOZARIL [Suspect]
     Indication: SCHIZOPHRENIA, PARANOID TYPE
     Dosage: 25 MG, BID, ORAL
     Route: 048
     Dates: start: 20031210, end: 20031217
  2. PROZAC [Concomitant]
  3. DEPAKOTE [Concomitant]
  4. SYNTHROID [Concomitant]

REACTIONS (1)
  - HYPERTENSION [None]
